FAERS Safety Report 9739182 (Version 2)
Quarter: 2013Q4

REPORT INFORMATION
  Report Type: Report from Study
  Country: IT (occurrence: IT)
  Receive Date: 20131209
  Receipt Date: 20131209
  Transmission Date: 20140711
  Serious: Yes (Life-Threatening, Hospitalization)
  Sender: FDA-Public Use
  Company Number: IT-CELGENEUS-083-21880-13103118

PATIENT
  Age: 51 Year
  Sex: Female
  Weight: 50 kg

DRUGS (11)
  1. REVLIMID [Suspect]
     Indication: NON-HODGKIN^S LYMPHOMA
     Dosage: 10 MILLIGRAM
     Route: 048
     Dates: start: 20130125, end: 20130611
  2. RITUXIMAB [Suspect]
     Indication: NON-HODGKIN^S LYMPHOMA
     Route: 065
     Dates: start: 20130930
  3. CYCLOPHOSPHAMIDE [Suspect]
     Indication: NON-HODGKIN^S LYMPHOMA
     Route: 065
     Dates: start: 20130930
  4. ADRIAMYCIN [Suspect]
     Indication: NON-HODGKIN^S LYMPHOMA
     Route: 065
     Dates: start: 20130930
  5. VINCRISTINE [Suspect]
     Indication: NON-HODGKIN^S LYMPHOMA
     Route: 065
     Dates: start: 20130930
  6. PREDNISONE [Suspect]
     Indication: NON-HODGKIN^S LYMPHOMA
     Route: 065
     Dates: start: 20130930
  7. TALAVIR [Concomitant]
     Indication: PRODUCT USED FOR UNKNOWN INDICATION
     Dosage: 1000 MILLIGRAM
     Route: 065
     Dates: start: 20130125
  8. ALLOPURINOL [Concomitant]
     Indication: PRODUCT USED FOR UNKNOWN INDICATION
     Dosage: 300 MILLIGRAM
     Route: 065
     Dates: start: 20130125
  9. DELTACORTENE [Concomitant]
     Indication: PRODUCT USED FOR UNKNOWN INDICATION
     Dosage: 50 MILLIGRAM
     Route: 065
     Dates: start: 20130930, end: 20131004
  10. LANSOX [Concomitant]
     Indication: PRODUCT USED FOR UNKNOWN INDICATION
     Dosage: 30 MILLIGRAM
     Route: 065
     Dates: start: 20130930
  11. CIPROFLOXACINE [Concomitant]
     Indication: PRODUCT USED FOR UNKNOWN INDICATION
     Route: 065

REACTIONS (2)
  - Pneumonia pseudomonal [Recovered/Resolved with Sequelae]
  - Febrile neutropenia [Not Recovered/Not Resolved]
